FAERS Safety Report 8888536 (Version 3)
Quarter: 2013Q1

REPORT INFORMATION
  Report Type: Spontaneous
  Country: GB (occurrence: GB)
  Receive Date: 20121106
  Receipt Date: 20130227
  Transmission Date: 20140127
  Serious: Yes (Other)
  Sender: FDA-Public Use
  Company Number: GB-ROCHE-1152954

PATIENT
  Age: 73 Year
  Sex: Male

DRUGS (1)
  1. LUCENTIS [Suspect]
     Indication: AGE-RELATED MACULAR DEGENERATION
     Dosage: LAST DOSE PRIOR TO SAE ON 11/JUN/2012, LAST DOSE ADMINISTERED ON 01/AUG/2012
     Route: 050
     Dates: start: 20120412

REACTIONS (2)
  - Vitreous haemorrhage [Recovered/Resolved with Sequelae]
  - Visual acuity reduced [Unknown]
